FAERS Safety Report 4796203-7 (Version None)
Quarter: 2005Q4

REPORT INFORMATION
  Report Type: 
  Country: None (occurrence: None)
  Receive Date: 20051007
  Receipt Date: 20050930
  Transmission Date: 20060501
  Serious: Yes (Other)
  Sender: FDA-Public Use
  Company Number: 163-20785-05060260

PATIENT
  Age: 77 Year
  Sex: Male

DRUGS (4)
  1. THALOMID [Suspect]
     Indication: MULTIPLE MYELOMA
     Dosage: 150 MG, DAILY, ORAL
     Route: 048
     Dates: start: 20041201, end: 20050701
  2. BIAXIN [Suspect]
     Indication: ANTI-INFECTIVE THERAPY
  3. NEXIUM [Concomitant]
  4. HYDROCHLOROTHIAZIDE [Concomitant]

REACTIONS (4)
  - ASTHMA [None]
  - BRONCHITIS VIRAL [None]
  - DRUG HYPERSENSITIVITY [None]
  - DYSPEPSIA [None]
